FAERS Safety Report 17025462 (Version 1)
Quarter: 2019Q4

REPORT INFORMATION
  Report Type: Spontaneous
  Country: CA (occurrence: CA)
  Receive Date: 20191113
  Receipt Date: 20191113
  Transmission Date: 20200122
  Serious: Yes (Other)
  Sender: FDA-Public Use
  Company Number: CA-ROCHE-2460720

PATIENT
  Age: 72 Year
  Sex: Female

DRUGS (8)
  1. BIFIDOBACTERIUM ANIMALIS [Concomitant]
     Active Substance: BIFIDOBACTERIUM ANIMALIS LACTIS
  2. VITAMIN C [Concomitant]
     Active Substance: ASCORBIC ACID
  3. GLUCOSAMINE [Concomitant]
     Active Substance: GLUCOSAMINE
  4. XELJANZ [Suspect]
     Active Substance: TOFACITINIB CITRATE
     Indication: PRODUCT USED FOR UNKNOWN INDICATION
     Route: 065
  5. ERGOCALCIFEROL. [Concomitant]
     Active Substance: ERGOCALCIFEROL
  6. ACTEMRA [Suspect]
     Active Substance: TOCILIZUMAB
     Indication: PRODUCT USED FOR UNKNOWN INDICATION
     Route: 065
  7. ENBREL [Suspect]
     Active Substance: ETANERCEPT
     Indication: RHEUMATOID ARTHRITIS
     Route: 058
  8. ENBREL [Suspect]
     Active Substance: ETANERCEPT
     Route: 058

REACTIONS (8)
  - Carotid artery aneurysm [Unknown]
  - Drug ineffective [Unknown]
  - Alopecia [Unknown]
  - Joint swelling [Unknown]
  - Swelling [Unknown]
  - Therapeutic product effect decreased [Unknown]
  - Arthritis [Unknown]
  - Feeling abnormal [Unknown]
